FAERS Safety Report 5915337-4 (Version None)
Quarter: 2008Q3

REPORT INFORMATION
  Report Type: 
  Country: None (occurrence: None)
  Receive Date: 20080909
  Receipt Date: 20071217
  Transmission Date: 20090109
  Serious: Yes (Hospitalization)
  Sender: FDA-Public Use
  Company Number: 163-20785-07120924 (0)

PATIENT
  Sex: Male

DRUGS (1)
  1. THALOMID [Suspect]
     Indication: MULTIPLE MYELOMA
     Dosage: 100 MG, QD, ORAL
     Route: 048
     Dates: start: 20050301

REACTIONS (6)
  - BLOOD CHOLESTEROL INCREASED [None]
  - DEEP VEIN THROMBOSIS [None]
  - FATIGUE [None]
  - LUNG INFECTION [None]
  - NASOPHARYNGITIS [None]
  - NEUROPATHY PERIPHERAL [None]
